FAERS Safety Report 6635184-8 (Version None)
Quarter: 2010Q1

REPORT INFORMATION
  Report Type: 
  Country: None (occurrence: None)
  Receive Date: 20100315
  Receipt Date: 20100303
  Transmission Date: 20100710
  Serious: Yes (Other)
  Sender: FDA-Public Use
  Company Number: GB-GILEAD-2009-0025174

PATIENT
  Age: 42 Year
  Sex: Female
  Weight: 74 kg

DRUGS (11)
  1. TRUVADA [Suspect]
     Indication: HIV INFECTION
     Route: 048
     Dates: start: 20070605, end: 20081023
  2. INTELENCE [Suspect]
     Indication: HIV INFECTION
     Route: 048
     Dates: start: 20081023
  3. PREZISTA [Suspect]
     Indication: HIV INFECTION
     Route: 048
     Dates: start: 20081023
  4. ISENTRESS [Suspect]
     Indication: HIV INFECTION
     Route: 048
     Dates: start: 20081023
  5. NORVIR [Suspect]
     Indication: HIV INFECTION
     Route: 048
     Dates: start: 20060905, end: 20081022
  6. NORVIR [Suspect]
     Dates: start: 20081023
  7. APTIVUS [Suspect]
     Indication: HIV INFECTION
     Route: 048
     Dates: start: 20070605, end: 20081023
  8. NOVORAPID [Concomitant]
     Indication: GESTATIONAL DIABETES
     Dates: end: 20091022
  9. ENTONOX [Concomitant]
     Route: 055
  10. AZIDOTHYMIDINE [Concomitant]
  11. PREDNISOLONE [Concomitant]

REACTIONS (5)
  - ALANINE AMINOTRANSFERASE INCREASED [None]
  - ASPARTATE AMINOTRANSFERASE INCREASED [None]
  - HEPATITIS [None]
  - PREGNANCY [None]
  - PREMATURE LABOUR [None]
